FAERS Safety Report 7644079-2 (Version None)
Quarter: 2011Q3

REPORT INFORMATION
  Report Type: 
  Country: None (occurrence: None)
  Receive Date: 20110729
  Receipt Date: 20110722
  Transmission Date: 20111222
  Serious: Yes (Hospitalization)
  Sender: FDA-Public Use
  Company Number: DE-TEVA-291904USA

PATIENT
  Sex: Male
  Weight: 95 kg

DRUGS (2)
  1. PIMOZIDE TABLETS [Suspect]
     Route: 048
  2. CLOZAPINE [Suspect]

REACTIONS (5)
  - VOMITING [None]
  - TACHYCARDIA [None]
  - DRUG ABUSE [None]
  - ABDOMINAL PAIN [None]
  - SLUGGISHNESS [None]
